FAERS Safety Report 4885103-X (Version None)
Quarter: 2006Q1

REPORT INFORMATION
  Report Type: 
  Country: None (occurrence: None)
  Receive Date: 20060119
  Receipt Date: 20060109
  Transmission Date: 20060701
  Serious: Yes (Other)
  Sender: FDA-Public Use
  Company Number: IN-BRISTOL-MYERS SQUIBB COMPANY-13252796

PATIENT
  Age: 42 Year
  Sex: Male

DRUGS (1)
  1. METHOTREXATE [Suspect]
     Indication: PSORIATIC ARTHROPATHY

REACTIONS (2)
  - ERECTILE DYSFUNCTION [None]
  - GYNAECOMASTIA [None]
